FAERS Safety Report 10524707 (Version 4)
Quarter: 2015Q2

REPORT INFORMATION
  Report Type: Spontaneous
  Country: US (occurrence: US)
  Receive Date: 20141017
  Receipt Date: 20150413
  Transmission Date: 20150821
  Serious: Yes (Hospitalization)
  Sender: FDA-Public Use
  Company Number: US-BAYER-2014-153447

PATIENT
  Age: 23 Year
  Sex: Female
  Weight: 88 kg

DRUGS (1)
  1. MIRENA [Suspect]
     Active Substance: LEVONORGESTREL
     Indication: CONTRACEPTION
     Dosage: 20 MCG/24HR, CONT
     Route: 015
     Dates: start: 20041112, end: 20060224

REACTIONS (14)
  - Injury [None]
  - Abdominal discomfort [Not Recovered/Not Resolved]
  - Depression [None]
  - Anxiety [None]
  - Cyst [None]
  - Off label use [None]
  - Psychological trauma [None]
  - Device issue [None]
  - Pelvic pain [None]
  - Procedural pain [Not Recovered/Not Resolved]
  - Uterine perforation [None]
  - Pelvic discomfort [None]
  - Emotional distress [None]
  - Infertility female [None]

NARRATIVE: CASE EVENT DATE: 20041112
